FAERS Safety Report 13926337 (Version 1)
Quarter: 2017Q3

REPORT INFORMATION
  Report Type: Spontaneous
  Country: US (occurrence: US)
  Receive Date: 20170831
  Receipt Date: 20170831
  Transmission Date: 20171127
  Serious: Yes (Hospitalization)
  Sender: FDA-Public Use
  Company Number: US-ASTRAZENECA-2017SE87643

PATIENT
  Sex: Male

DRUGS (1)
  1. BRILINTA [Suspect]
     Active Substance: TICAGRELOR
     Route: 048
     Dates: start: 2017

REACTIONS (4)
  - Skin discolouration [Unknown]
  - Wrong technique in product usage process [Unknown]
  - Compartment syndrome [Unknown]
  - Wound secretion [Unknown]
